FAERS Safety Report 5950261-2 (Version None)
Quarter: 2008Q4

REPORT INFORMATION
  Report Type: 
  Country: None (occurrence: None)
  Receive Date: 20081112
  Receipt Date: 20081103
  Transmission Date: 20090506
  Serious: Yes (Hospitalization)
  Sender: FDA-Public Use
  Company Number: GB-BRACCO-000107

PATIENT
  Age: 70 Year
  Sex: Female

DRUGS (4)
  1. BARIUM [Suspect]
     Indication: BARIUM ENEMA
     Route: 054
  2. BARIUM [Suspect]
     Indication: ABDOMINAL PAIN
     Route: 054
  3. ANTISPASMODICS/ ANTICHOLINERGICS [Concomitant]
     Indication: ABDOMINAL PAIN
     Route: 065
  4. ANTISPASMODICS/ ANTICHOLINERGICS [Concomitant]
     Indication: ANGINA PECTORIS
     Route: 065

REACTIONS (3)
  - CARDIAC FAILURE [None]
  - COLONIC OBSTRUCTION [None]
  - INTESTINAL ISCHAEMIA [None]
